FAERS Safety Report 9879651 (Version 2)
Quarter: 2014Q1

REPORT INFORMATION
  Report Type: Spontaneous
  Country: JP (occurrence: JP)
  Receive Date: 20140206
  Receipt Date: 20140218
  Transmission Date: 20141002
  Serious: Yes (Hospitalization)
  Sender: FDA-Public Use
  Company Number: JP-B.I. PHARMACEUTICALS,INC./RIDGEFIELD-2014-BI-04280NB

PATIENT
  Age: 84 Year
  Sex: Female

DRUGS (5)
  1. MICAMLO COMBINATION [Suspect]
     Indication: HYPERTENSION
     Route: 048
     Dates: start: 201301, end: 20140129
  2. GOREISAN / GOREISAN [Concomitant]
     Dosage: 3 ANZ
     Route: 048
  3. BONOTEO / MINODRONIC ACID HYDRATE [Concomitant]
     Dosage: 1 ANZ
     Route: 048
  4. SHAKUYAKUKANZOTO / SHAKUYAKUKANZOTO [Concomitant]
     Dosage: 2 ANZ
     Route: 048
  5. MEVALOTIN / PRAVASTATIN SODIUM [Concomitant]
     Dosage: 1 ANZ
     Route: 048

REACTIONS (2)
  - Loss of consciousness [Recovered/Resolved]
  - Fall [Unknown]
